FAERS Safety Report 4952629-X (Version None)
Quarter: 2006Q1

REPORT INFORMATION
  Report Type: 
  Country: None (occurrence: None)
  Receive Date: 20060320
  Receipt Date: 20060307
  Transmission Date: 20060701
  Serious: Yes (Hospitalization, Other)
  Sender: FDA-Public Use
  Company Number: 06-000197

PATIENT
  Age: 87 Year
  Sex: Male

DRUGS (5)
  1. PHENAZOPYRIDINE HCL TAB [Suspect]
     Indication: DYSURIA
     Dosage: TID, ORAL
     Route: 048
  2. PREDNISONE [Concomitant]
  3. DIGOXIN [Concomitant]
  4. LASIX [Concomitant]
  5. DITROPAN [Concomitant]

REACTIONS (5)
  - BONE MARROW FAILURE [None]
  - DRUG ADMINISTRATION ERROR [None]
  - FATIGUE [None]
  - HEPATOTOXICITY [None]
  - RENAL FAILURE ACUTE [None]
